FAERS Safety Report 23767853 (Version 4)
Quarter: 2024Q2

REPORT INFORMATION
  Report Type: Report from Study
  Country: ES (occurrence: ES)
  Receive Date: 20240422
  Receipt Date: 20240618
  Transmission Date: 20240716
  Serious: Yes (Hospitalization)
  Sender: FDA-Public Use
  Company Number: ES-ABBVIE-5726185

PATIENT
  Age: 48 Year
  Sex: Female
  Weight: 69 kg

DRUGS (3)
  1. UPADACITINIB [Suspect]
     Active Substance: UPADACITINIB
     Indication: Dermatitis atopic
     Route: 048
     Dates: start: 20230330, end: 20240401
  2. UPADACITINIB [Suspect]
     Active Substance: UPADACITINIB
     Indication: Dermatitis atopic
     Route: 048
     Dates: start: 20240409
  3. EBASTINE [Concomitant]
     Active Substance: EBASTINE
     Indication: Dermatitis atopic
     Route: 048
     Dates: start: 20230803

REACTIONS (2)
  - Bacterial pyelonephritis [Recovered/Resolved]
  - Herpes simplex [Recovered/Resolved]

NARRATIVE: CASE EVENT DATE: 20240401
